FAERS Safety Report 12624780 (Version 1)
Quarter: 2016Q3

REPORT INFORMATION
  Report Type: Spontaneous
  Country: US (occurrence: US)
  Receive Date: 20160805
  Receipt Date: 20160805
  Transmission Date: 20161109
  Serious: Yes (Other)
  Sender: FDA-Public Use
  Company Number: US-TEVA-680960ACC

PATIENT
  Sex: Female

DRUGS (1)
  1. PARAGARD T 380A [Suspect]
     Active Substance: COPPER
     Dosage: ABOUT 5 YEARS AGO

REACTIONS (3)
  - Chlamydial infection [Unknown]
  - Abdominal pain [Unknown]
  - Menstruation irregular [Unknown]
